FAERS Safety Report 12561235 (Version 1)
Quarter: 2016Q3

REPORT INFORMATION
  Report Type: Spontaneous
  Country: US (occurrence: US)
  Receive Date: 20160715
  Receipt Date: 20160715
  Transmission Date: 20161109
  Serious: No
  Sender: FDA-Public Use
  Company Number: US-TARO-2015TAR00561

PATIENT
  Age: 65 Year
  Sex: Female
  Weight: 50.11 kg

DRUGS (26)
  1. SUCRALFATE. [Concomitant]
     Active Substance: SUCRALFATE
     Dosage: 1 G, 4X/DAY
  2. MECLIZINE [Concomitant]
     Active Substance: MECLIZINE HYDROCHLORIDE
     Dosage: 25 MG, AS NEEDED
  3. ACETAMINOPHEN. [Concomitant]
     Active Substance: ACETAMINOPHEN
     Dosage: 1000 MG, 2X/DAY; 500 MG, 1X/DAY
  4. BABY ASPIRIN [Concomitant]
     Active Substance: ASPIRIN
     Dosage: 81 MG, 1X/DAY
  5. IMODIUM [Concomitant]
     Active Substance: LOPERAMIDE HYDROCHLORIDE
     Dosage: UNK, AS NEEDED
  6. AMLODIPINE [Concomitant]
     Active Substance: AMLODIPINE BESYLATE
     Dosage: 5 MG, 1X/DAY
  7. LORAZEPAM. [Concomitant]
     Active Substance: LORAZEPAM
     Indication: ANXIETY
     Dosage: 0.5 MG, AS NEEDED FOR ANXIETY
  8. BENEFIBER [Concomitant]
     Active Substance: STARCH, WHEAT
     Dosage: 1 TBSP, 2X/DAY
  9. OLOPATADINE NASAL SPRAY [Concomitant]
     Dosage: 2 DOSAGE UNITS IN EACH NOSTRIL, 2X/DAY
     Route: 045
  10. ACETAZOLAMIDE TABLETS 250 MG [Suspect]
     Active Substance: ACETAZOLAMIDE
     Indication: DIZZINESS
  11. ENABLEX [Concomitant]
     Active Substance: DARIFENACIN HYDROBROMIDE
     Dosage: 15 MG, 1X/DAY
  12. MIGRANAL [Concomitant]
     Active Substance: DIHYDROERGOTAMINE MESYLATE
     Dosage: 2 SPRAYS IN EACH NOSTRIL UP TO TWICE DAILY, ONLY TWICE PER WEEK
     Route: 045
  13. CELEBREX [Concomitant]
     Active Substance: CELECOXIB
     Dosage: 200 MG, 1X/DAY
  14. RIVASTIGMINE. [Concomitant]
     Active Substance: RIVASTIGMINE
     Dosage: 1.5 MG, 2X/DAY
  15. LEVOTHYROXINE. [Concomitant]
     Active Substance: LEVOTHYROXINE
     Dosage: 75 ?G, 1X/DAY
  16. NEXIUM [Concomitant]
     Active Substance: ESOMEPRAZOLE MAGNESIUM
     Dosage: 40 MG, 2X/DAY
  17. ACETAMINOPHEN. [Concomitant]
     Active Substance: ACETAMINOPHEN
     Dosage: 500 MG, 1X/DAY
  18. BIOTIN [Concomitant]
     Active Substance: BIOTIN
     Dosage: 5000 ?G, 1X/DAY
  19. MAGNESIUM [Concomitant]
     Active Substance: MAGNESIUM
     Dosage: 1500 MG, 1X/DAY
  20. PROBIOTIC [Concomitant]
     Active Substance: PROBIOTICS NOS
     Dosage: UNK, 1X/DAY
  21. RANITIDINE. [Concomitant]
     Active Substance: RANITIDINE
     Dosage: 300 MG, 2X/DAY
  22. ONDANSETRON ODT [Concomitant]
     Active Substance: ONDANSETRON
     Dosage: 8 MG, AS NEEDED EVERY 6 HOURS
  23. VITAMIN D3 [Concomitant]
     Active Substance: CHOLECALCIFEROL
     Dosage: 1000 IU, 1X/DAY
  24. ACETAZOLAMIDE TABLETS 250 MG [Suspect]
     Active Substance: ACETAZOLAMIDE
     Indication: VERTIGO
     Dosage: 250 MG, 1X/DAY
     Route: 048
     Dates: start: 20150410
  25. CARISOPRODOL. [Concomitant]
     Active Substance: CARISOPRODOL
     Dosage: 700 MG, 1X/DAY
  26. DICYCLOMINE [Concomitant]
     Active Substance: DICYCLOMINE HYDROCHLORIDE
     Dosage: 20 MG, 4X/DAY

REACTIONS (2)
  - Off label use [Not Recovered/Not Resolved]
  - Diarrhoea [Not Recovered/Not Resolved]

NARRATIVE: CASE EVENT DATE: 20150410
